FAERS Safety Report 6986440-5 (Version None)
Quarter: 2010Q3

REPORT INFORMATION
  Report Type: 
  Country: None (occurrence: None)
  Receive Date: 20100915
  Receipt Date: 20090713
  Transmission Date: 20110219
  Serious: No
  Sender: FDA-Public Use
  Company Number: US-WYE-H10122609

PATIENT
  Age: 61 Year
  Sex: Female
  Weight: 71.73 kg

DRUGS (8)
  1. PRISTIQ [Suspect]
     Indication: NERVOUSNESS
     Route: 048
     Dates: start: 20090710
  2. PRISTIQ [Suspect]
     Indication: ANXIETY
  3. AVAPRO [Concomitant]
  4. METFORMIN [Concomitant]
  5. CRESTOR [Concomitant]
  6. TYLENOL [Concomitant]
  7. NORVASC [Concomitant]
  8. HYDROCHLOROTHIAZIDE [Concomitant]

REACTIONS (4)
  - DECREASED APPETITE [None]
  - DEPRESSED LEVEL OF CONSCIOUSNESS [None]
  - FATIGUE [None]
  - SOMNOLENCE [None]
